FAERS Safety Report 23790077 (Version 1)
Quarter: 2024Q2

REPORT INFORMATION
  Report Type: Other
  Country: US (occurrence: US)
  Receive Date: 20240426
  Receipt Date: 20240426
  Transmission Date: 20240716
  Serious: Yes (Hospitalization)
  Sender: FDA-Public Use
  Company Number: US-SIGA Technologies, Inc.-2156132

PATIENT
  Sex: Male

DRUGS (7)
  1. TPOXX [Suspect]
     Active Substance: TECOVIRIMAT
     Indication: Monkeypox
     Route: 048
  2. TPOXX [Suspect]
     Active Substance: TECOVIRIMAT
     Route: 042
  3. PROBENECID [Concomitant]
     Active Substance: PROBENECID
  4. CIDOFOVIR [Concomitant]
     Active Substance: CIDOFOVIR
  5. DORAVIRINE [Concomitant]
     Active Substance: DORAVIRINE
  6. COBICISTAT\DARUNAVIR ETHANOLATE [Concomitant]
     Active Substance: COBICISTAT\DARUNAVIR ETHANOLATE
  7. bictegravir/alafenamide/tenofovir [Concomitant]

REACTIONS (1)
  - Drug resistance [Recovering/Resolving]
